FAERS Safety Report 24701218 (Version 1)
Quarter: 2024Q4

REPORT INFORMATION
  Report Type: Spontaneous
  Country: US (occurrence: None)
  Receive Date: 20241205
  Receipt Date: 20241205
  Transmission Date: 20250115
  Serious: Yes (Hospitalization)
  Sender: Public
  Company Number: None

PATIENT
  Age: 50 Year
  Sex: Female

DRUGS (3)
  1. CINACALCET HYDROCHLORIDE [Suspect]
     Active Substance: CINACALCET HYDROCHLORIDE
     Indication: End stage renal disease
     Dosage: 3 DAYS A WK (MONDAY, WEDNESDAY AND FRIDAY)?
     Route: 048
     Dates: start: 202408
  2. DROXIDOPA [Suspect]
     Active Substance: DROXIDOPA
     Indication: Hypotension
     Dosage: 100MG THREE TIMES A DAY BY MOUTH
     Route: 048
     Dates: start: 202409
  3. TACROLIMUS (BIOCON) [Concomitant]

REACTIONS (1)
  - Hypotension [None]

NARRATIVE: CASE EVENT DATE: 20241001
